FAERS Safety Report 9900778 (Version 1)
Quarter: 2014Q1

REPORT INFORMATION
  Report Type: Report from Study
  Country: US (occurrence: US)
  Receive Date: 20140217
  Receipt Date: 20140217
  Transmission Date: 20141002
  Serious: Yes (Hospitalization, Other)
  Sender: FDA-Public Use
  Company Number: US-ALEXION PHARMACEUTICALS INC.-A201202803

PATIENT
  Sex: Male

DRUGS (1)
  1. SOLIRIS [Suspect]
     Indication: HAEMOLYTIC URAEMIC SYNDROME
     Dosage: UNK
     Route: 042

REACTIONS (8)
  - Hepato-lenticular degeneration [Unknown]
  - Haemodialysis [Unknown]
  - Tracheostomy [Unknown]
  - Mouth haemorrhage [Unknown]
  - Fluid retention [Unknown]
  - Urine output decreased [Unknown]
  - Chromaturia [Unknown]
  - Epistaxis [Unknown]
